FAERS Safety Report 14844322 (Version 3)
Quarter: 2018Q2

REPORT INFORMATION
  Report Type: Spontaneous
  Country: US (occurrence: US)
  Receive Date: 20180503
  Receipt Date: 20180530
  Transmission Date: 20180711
  Serious: Yes (Other)
  Sender: FDA-Public Use
  Company Number: US-VERICEL CORPORATION-VCEL-2018-000215

PATIENT
  Sex: Female
  Weight: 71 kg

DRUGS (2)
  1. CARTICEL [Suspect]
     Active Substance: AUTOLOGOUS CULTURED CHONDROCYTES
     Dosage: UNK
     Route: 065
     Dates: start: 20120118
  2. CARTICEL [Suspect]
     Active Substance: AUTOLOGOUS CULTURED CHONDROCYTES
     Indication: CARTILAGE INJURY
     Dosage: UNK
     Route: 065
     Dates: start: 20080220

REACTIONS (2)
  - Pain [Unknown]
  - Treatment failure [Unknown]
